FAERS Safety Report 18550172 (Version 1)
Quarter: 2020Q4

REPORT INFORMATION
  Report Type: Spontaneous
  Country: US (occurrence: US)
  Receive Date: 20201126
  Receipt Date: 20201126
  Transmission Date: 20210114
  Serious: No
  Sender: FDA-Public Use
  Company Number: US-PFIZER INC-2020364351

PATIENT
  Age: 56 Year
  Sex: Female

DRUGS (2)
  1. IBRANCE [Suspect]
     Active Substance: PALBOCICLIB
     Indication: BREAST CANCER FEMALE
     Dosage: 100 MG, CYCLIC (100 MG QD (ONCE A DAY) X 21 DAYS Q 28 DAYS)
     Dates: start: 20190625
  2. IBRANCE [Suspect]
     Active Substance: PALBOCICLIB
     Dosage: 100 MG, CYCLIC ( 21 DAYS ON THEN 7 DAYS OFF, 28 DAY CYCLE)

REACTIONS (3)
  - Product taste abnormal [Unknown]
  - Nausea [Unknown]
  - Retching [Unknown]
